FAERS Safety Report 23350503 (Version 1)
Quarter: 2023Q4

REPORT INFORMATION
  Report Type: Spontaneous
  Country: DK (occurrence: DK)
  Receive Date: 20231229
  Receipt Date: 20231229
  Transmission Date: 20240110
  Serious: Yes (Other)
  Sender: FDA-Public Use
  Company Number: DK-IGSA-BIG0026995

PATIENT
  Age: 68 Year
  Sex: Male

DRUGS (1)
  1. ALBUMIN (HUMAN) [Suspect]
     Active Substance: ALBUMIN HUMAN
     Indication: Sepsis
     Dosage: UNK
     Route: 042

REACTIONS (3)
  - Hypersensitivity [Unknown]
  - Cardiac arrest [Unknown]
  - Rash [Unknown]
